FAERS Safety Report 8006362-0 (Version None)
Quarter: 2011Q4

REPORT INFORMATION
  Report Type: 
  Country: None (occurrence: None)
  Receive Date: 20111226
  Receipt Date: 20111219
  Transmission Date: 20120403
  Serious: Yes (Hospitalization, Other)
  Sender: FDA-Public Use
  Company Number: PHHY2011US60967

PATIENT
  Sex: Female

DRUGS (3)
  1. TOBI [Suspect]
     Indication: PSEUDOMONAS INFECTION
     Dosage: 300 MG, BID
     Dates: start: 20101220
  2. ALBUTEROL [Concomitant]
  3. TOBI [Suspect]
     Indication: BRONCHIECTASIS
     Dosage: 300 MG, BID
     Dates: start: 20110930

REACTIONS (7)
  - HAEMORRHAGE [None]
  - ABDOMINAL DISCOMFORT [None]
  - INFECTION [None]
  - INTESTINAL OBSTRUCTION [None]
  - INTESTINAL PERFORATION [None]
  - WOUND COMPLICATION [None]
  - HERNIA [None]
